FAERS Safety Report 23938916 (Version 1)
Quarter: 2024Q2

REPORT INFORMATION
  Report Type: Spontaneous
  Country: IN (occurrence: IN)
  Receive Date: 20240604
  Receipt Date: 20240604
  Transmission Date: 20240716
  Serious: Yes (Death, Hospitalization, Other)
  Sender: FDA-Public Use
  Company Number: IN-MYLANLABS-2024M1050022

PATIENT
  Age: 61 Year
  Sex: Male

DRUGS (1)
  1. METHOTREXATE [Suspect]
     Active Substance: METHOTREXATE
     Indication: Rheumatoid arthritis
     Dosage: 15 MILLIGRAM (15 MG ? 2 WEEK)
     Route: 065

REACTIONS (8)
  - Toxicity to various agents [Fatal]
  - Septic shock [Fatal]
  - Pancytopenia [Unknown]
  - Mucosal inflammation [Unknown]
  - Skin ulcer [Unknown]
  - Hypoalbuminaemia [Unknown]
  - Vomiting [Unknown]
  - Hypertransaminasaemia [Unknown]
